FAERS Safety Report 4961558-7 (Version None)
Quarter: 2006Q1

REPORT INFORMATION
  Report Type: 
  Country: None (occurrence: None)
  Receive Date: 20060329
  Receipt Date: 20060316
  Transmission Date: 20060701
  Serious: Yes (Life-Threatening)
  Sender: FDA-Public Use
  Company Number: 2006038618

PATIENT
  Age: 58 Year
  Sex: Male
  Weight: 85 kg

DRUGS (5)
  1. ZYVOX [Suspect]
     Indication: ILL-DEFINED DISORDER
     Dosage: (1200 MG, INTERVAL:  EVERY DAY), INTRAVENOUS
     Route: 042
     Dates: start: 20060209
  2. AMITRIPTYLINE (AMITRIPTYLINE) [Suspect]
     Indication: ILL-DEFINED DISORDER
     Dosage: (INTERVAL:  EVERY DAY), INTRAVENOUS
     Route: 042
     Dates: start: 20060211, end: 20060217
  3. VORICONAZOLE (VORICONAZOLE) [Concomitant]
  4. FENTANYL CITRATE [Concomitant]
  5. OMEPRAZOLE [Concomitant]

REACTIONS (3)
  - DRUG INTERACTION [None]
  - GRAND MAL CONVULSION [None]
  - MYOCLONUS [None]
